FAERS Safety Report 6520061-3 (Version None)
Quarter: 2009Q4

REPORT INFORMATION
  Report Type: 
  Country: None (occurrence: None)
  Receive Date: 20091229
  Receipt Date: 20091216
  Transmission Date: 20100525
  Serious: Yes (Hospitalization)
  Sender: FDA-Public Use
  Company Number: PHHY2009MX56178

PATIENT
  Age: 63 Year
  Sex: Female

DRUGS (1)
  1. DIOVAN HCT [Suspect]
     Indication: HYPERTENSION
     Dosage: TABLET (160/25 MG) PER DAY
     Dates: start: 20071201, end: 20091001

REACTIONS (1)
  - OVARIAN OPERATION [None]
